FAERS Safety Report 8413716-7 (Version None)
Quarter: 2012Q2

REPORT INFORMATION
  Report Type: 
  Country: None (occurrence: None)
  Receive Date: 20120605
  Receipt Date: 20120525
  Transmission Date: 20120825
  Serious: Yes (Other)
  Sender: FDA-Public Use
  Company Number: RS-US-EMD SERONO, INC.-7132787

PATIENT
  Age: 43 Year
  Sex: Male

DRUGS (1)
  1. MITOXANTRONE [Suspect]
     Indication: MULTIPLE SCLEROSIS
     Route: 042
     Dates: start: 20040101, end: 20060601

REACTIONS (1)
  - ACUTE PROMYELOCYTIC LEUKAEMIA [None]
